FAERS Safety Report 17519529 (Version 1)
Quarter: 2020Q1

REPORT INFORMATION
  Report Type: Report from Study
  Country: DE (occurrence: DE)
  Receive Date: 20200310
  Receipt Date: 20200310
  Transmission Date: 20200409
  Serious: Yes (Hospitalization)
  Sender: FDA-Public Use
  Company Number: DE-BIOGEN-2020BI00839966

PATIENT
  Sex: Female

DRUGS (2)
  1. TECFIDERA [Suspect]
     Active Substance: DIMETHYL FUMARATE
     Indication: MULTIPLE SCLEROSIS
     Route: 048
     Dates: start: 20190515, end: 20200113
  2. TECFIDERA [Suspect]
     Active Substance: DIMETHYL FUMARATE
     Route: 048
     Dates: start: 20190515

REACTIONS (4)
  - Noninfective oophoritis [Recovered/Resolved]
  - Bronchitis [Recovered/Resolved]
  - Dermal cyst [Recovered/Resolved]
  - Infected dermal cyst [Not Recovered/Not Resolved]

NARRATIVE: CASE EVENT DATE: 2020
